FAERS Safety Report 7127389-7 (Version None)
Quarter: 2010Q4

REPORT INFORMATION
  Report Type: 
  Country: None (occurrence: None)
  Receive Date: 20101129
  Receipt Date: 20100301
  Transmission Date: 20110411
  Serious: Yes (Hospitalization)
  Sender: FDA-Public Use
  Company Number: US-PFIZER INC-2010026808

PATIENT
  Sex: Female

DRUGS (14)
  1. REVATIO [Suspect]
     Dosage: 20 MG, UNK
     Route: 048
  2. AMBRISENTAN [Suspect]
     Indication: PULMONARY ARTERIAL HYPERTENSION
     Dosage: 10 MG, UNK
     Route: 048
     Dates: start: 20080513, end: 20090928
  3. CYMBALTA [Concomitant]
  4. ZOCOR [Concomitant]
  5. XANAX [Concomitant]
  6. LASIX [Concomitant]
  7. GLYBURIDE [Concomitant]
  8. WELLBUTRIN [Concomitant]
  9. SYMBICORT [Concomitant]
  10. VITAMIN B-12 [Concomitant]
  11. SPIRIVA [Concomitant]
  12. ASA [Concomitant]
  13. CARTIA XT [Concomitant]
  14. XOPENEX [Concomitant]

REACTIONS (1)
  - OEDEMA [None]
